FAERS Safety Report 21376602 (Version 1)
Quarter: 2022Q3

REPORT INFORMATION
  Report Type: Spontaneous
  Country: CN (occurrence: CN)
  Receive Date: 20220926
  Receipt Date: 20220926
  Transmission Date: 20221026
  Serious: Yes (Death, Other)
  Sender: FDA-Public Use
  Company Number: CN-AMGEN-CHNSP2022162337

PATIENT
  Age: 40 Year
  Sex: Female

DRUGS (5)
  1. BLINATUMOMAB [Suspect]
     Active Substance: BLINATUMOMAB
     Indication: B precursor type acute leukaemia
     Dosage: 9 MICROGRAM
     Route: 065
  2. IDARUBICIN [Concomitant]
     Active Substance: IDARUBICIN
  3. VINCRISTINE [Concomitant]
     Active Substance: VINCRISTINE
  4. DEXAMETHASONE [Concomitant]
     Active Substance: DEXAMETHASONE
  5. ASPARAGINASE [Concomitant]
     Active Substance: ASPARAGINASE

REACTIONS (2)
  - B precursor type acute leukaemia [Fatal]
  - Cytokine release syndrome [Unknown]
